FAERS Safety Report 8971706 (Version 1)
Quarter: 2012Q4

REPORT INFORMATION
  Report Type: 
  Country: GB (occurrence: GB)
  Receive Date: 20121217
  Receipt Date: 20121217
  Transmission Date: 20130627
  Serious: Yes (Hospitalization, Other)
  Sender: FDA-Public Use
  Company Number: GB-TEVA-374824ISR

PATIENT
  Age: 59 Year
  Sex: Male

DRUGS (5)
  1. TRAZODONE [Suspect]
     Indication: FATIGUE
     Dosage: Once at night
     Route: 048
     Dates: start: 20121116, end: 20121122
  2. CITALOPRAM [Concomitant]
  3. AMLODIPINE [Concomitant]
  4. SIMVASTATIN [Concomitant]
  5. TESTOSTERONE [Concomitant]

REACTIONS (3)
  - Idiopathic thrombocytopenic purpura [Not Recovered/Not Resolved]
  - Oral mucosal blistering [Unknown]
  - Post procedural haemorrhage [Unknown]
